FAERS Safety Report 4898678-1 (Version None)
Quarter: 2006Q1

REPORT INFORMATION
  Report Type: 
  Country: None (occurrence: None)
  Receive Date: 20060202
  Receipt Date: 20060116
  Transmission Date: 20060701
  Serious: Yes (Other)
  Sender: FDA-Public Use
  Company Number: JP-BOEHRINGER INGELHEIM PHARMACEUTICALS, INC.-2006-BP-01182YA

PATIENT
  Sex: Male

DRUGS (11)
  1. HARNAL D (TAMSULOSIN HYDROCHLORIDE) [Suspect]
     Indication: BENIGN PROSTATIC HYPERPLASIA
     Route: 048
     Dates: start: 20051128, end: 20060110
  2. CIPROXAN [Suspect]
     Indication: BIOPSY PROSTATE
     Route: 048
     Dates: start: 20060106, end: 20060110
  3. CIPROXAN [Suspect]
     Indication: PROSTATE CANCER
  4. TEMOCAPRIL HYDROCHLORIDE [Concomitant]
     Indication: HYPERTENSION
     Route: 048
  5. NISOLDIPINE [Concomitant]
     Indication: HYPERTENSION
     Route: 048
  6. SODIUM CHLORIDE COMPOUND INJECTION [Concomitant]
     Indication: PROSTATE CANCER
     Dates: start: 20060106, end: 20060106
  7. SODIUM CHLORIDE COMPOUND INJECTION [Concomitant]
     Indication: BIOPSY PROSTATE
  8. LIDOCAINE [Concomitant]
     Indication: PROSTATE CANCER
     Dates: start: 20060106, end: 20060106
  9. LIDOCAINE [Concomitant]
     Indication: BIOPSY PROSTATE
  10. GADODIAMIDE [Concomitant]
     Indication: PROSTATE CANCER
     Route: 042
     Dates: start: 20051205, end: 20051205
  11. GADODIAMIDE [Concomitant]
     Indication: BIOPSY PROSTATE

REACTIONS (6)
  - ALANINE AMINOTRANSFERASE INCREASED [None]
  - ASPARTATE AMINOTRANSFERASE INCREASED [None]
  - BLOOD CREATININE INCREASED [None]
  - BLOOD LACTATE DEHYDROGENASE INCREASED [None]
  - C-REACTIVE PROTEIN INCREASED [None]
  - HEPATIC FUNCTION ABNORMAL [None]
